FAERS Safety Report 4637430-9 (Version None)
Quarter: 2005Q2

REPORT INFORMATION
  Report Type: 
  Country: None (occurrence: None)
  Receive Date: 20050418
  Receipt Date: 20050331
  Transmission Date: 20051028
  Serious: Yes (Disabling)
  Sender: FDA-Public Use
  Company Number: 200510845EU

PATIENT
  Age: 85 Year
  Sex: Female

DRUGS (3)
  1. ENOXAPARIN SODIUM [Suspect]
     Indication: ARRHYTHMIA SUPRAVENTRICULAR
     Route: 058
     Dates: start: 20050121, end: 20050126
  2. ALBYL-E [Suspect]
     Indication: ARRHYTHMIA SUPRAVENTRICULAR
     Route: 048
     Dates: start: 20050119, end: 20050127
  3. CALCIGRAN [Concomitant]
     Indication: OSTEOPOROSIS
     Route: 048

REACTIONS (2)
  - PARESIS [None]
  - RETROPERITONEAL HAEMORRHAGE [None]
